FAERS Safety Report 5460974-7 (Version None)
Quarter: 2007Q3

REPORT INFORMATION
  Report Type: 
  Country: None (occurrence: None)
  Receive Date: 20070822
  Receipt Date: 20060829
  Transmission Date: 20080115
  Serious: Yes (Other)
  Sender: FDA-Public Use
  Company Number: 2006096306

PATIENT
  Age: 69 Year
  Sex: Male
  Weight: 81.6475 kg

DRUGS (6)
  1. NORVASC [Suspect]
     Indication: HYPERTENSION
     Dosage: 2.5 MG (2.5 MG, 1 IN 24 HR), ORAL; 10 MG (1 IN 24 HR), ORAL
     Route: 048
     Dates: end: 20060801
  2. ZOCOR [Concomitant]
  3. NEXIUM [Concomitant]
  4. ACETYLSALICYLIC ACID SRT [Concomitant]
  5. UNSPECIFIED ANTI-INFLAMMATORY EYEDROPS (ANTIINFLAMMATORY AGENTS, OPHTH [Concomitant]
  6. ATENOLOL [Concomitant]

REACTIONS (2)
  - ATRIAL FIBRILLATION [None]
  - HEART RATE IRREGULAR [None]
